FAERS Safety Report 10715359 (Version 2)
Quarter: 2015Q1

REPORT INFORMATION
  Report Type: Spontaneous
  Country: BR (occurrence: BR)
  Receive Date: 20150116
  Receipt Date: 20150120
  Transmission Date: 20150721
  Serious: Yes (Hospitalization, Other)
  Sender: FDA-Public Use
  Company Number: BR-PFIZER INC-2014310779

PATIENT
  Age: 56 Year
  Sex: Male
  Weight: 56 kg

DRUGS (2)
  1. ZOMETA [Suspect]
     Active Substance: ZOLEDRONIC ACID
     Indication: CALCIUM DEFICIENCY
     Dosage: UNK
     Dates: start: 2013, end: 2014
  2. SUTENT [Suspect]
     Active Substance: SUNITINIB MALATE
     Indication: RENAL CANCER METASTATIC
     Dosage: 37.5 MG, DAILY CYCLIC (4X2)
     Dates: start: 2013, end: 2014

REACTIONS (18)
  - Osteonecrosis of jaw [Recovered/Resolved]
  - Palmar-plantar erythrodysaesthesia syndrome [Recovered/Resolved]
  - Decreased appetite [Recovered/Resolved]
  - Yellow skin [Recovered/Resolved]
  - Diarrhoea [Recovered/Resolved]
  - Epistaxis [Recovered/Resolved]
  - Tongue ulceration [Recovered/Resolved]
  - Gingival disorder [Recovering/Resolving]
  - Constipation [Recovered/Resolved]
  - Oral disorder [Recovered/Resolved]
  - Gait disturbance [Recovered/Resolved]
  - Haemorrhage [Recovered/Resolved]
  - Eye haemorrhage [Recovered/Resolved]
  - Oesophageal haemorrhage [Recovered/Resolved]
  - Thrombosis [Recovered/Resolved]
  - Gastrooesophageal reflux disease [Recovered/Resolved]
  - Blood pressure increased [Recovered/Resolved]
  - Mouth haemorrhage [Recovered/Resolved]

NARRATIVE: CASE EVENT DATE: 2013
